FAERS Safety Report 12003770 (Version 1)
Quarter: 2016Q1

REPORT INFORMATION
  Report Type: Spontaneous
  Country: US (occurrence: US)
  Receive Date: 20160204
  Receipt Date: 20160204
  Transmission Date: 20160526
  Serious: No
  Sender: FDA-Public Use
  Company Number: US-009507513-1601USA011093

PATIENT
  Sex: Female

DRUGS (1)
  1. BELSOMRA [Suspect]
     Active Substance: SUVOREXANT
     Dosage: 20 MG (1 TABLET) DAILY
     Route: 048
     Dates: start: 20160123

REACTIONS (2)
  - Nasopharyngitis [Unknown]
  - Drug ineffective [Unknown]
